FAERS Safety Report 6114966-5 (Version None)
Quarter: 2009Q1

REPORT INFORMATION
  Report Type: 
  Country: None (occurrence: None)
  Receive Date: 20090313
  Receipt Date: 20090311
  Transmission Date: 20090719
  Serious: Yes (Hospitalization)
  Sender: FDA-Public Use
  Company Number: AT-PFIZER INC-2009173071

PATIENT

DRUGS (8)
  1. HALCION [Suspect]
     Dosage: 0.25 MG, UNK
     Route: 048
  2. DOMINAL FORTE [Suspect]
     Route: 048
  3. MOGADON [Suspect]
     Route: 048
  4. CARVEDILOL [Concomitant]
     Dosage: 25 MG, UNK
     Route: 048
  5. DIOVAN HCT [Concomitant]
     Dosage: 160MG/12.5MG
     Route: 048
  6. MELOXICAM [Concomitant]
     Dosage: 50 MG, 1X/DAY
     Route: 048
  7. MEXALEN [Concomitant]
     Dosage: 500 MG, 3X/DAY
     Route: 048
  8. OMEPRAZOLE [Concomitant]
     Dosage: 20 MG, UNK
     Route: 048

REACTIONS (1)
  - SOMNOLENCE [None]
